FAERS Safety Report 8037022-8 (Version None)
Quarter: 2012Q1

REPORT INFORMATION
  Report Type: 
  Country: None (occurrence: None)
  Receive Date: 20120111
  Receipt Date: 20120103
  Transmission Date: 20120608
  Serious: Yes (Hospitalization)
  Sender: FDA-Public Use
  Company Number: US-BAYER-2011-053223

PATIENT
  Age: 32 Year
  Sex: Female
  Weight: 102.95 kg

DRUGS (9)
  1. YASMIN [Suspect]
     Indication: CONTRACEPTION
     Dosage: UNK
     Dates: start: 20070206, end: 20070501
  2. DROSPIRENONE AND ETHINYL ESTRADIOL [Suspect]
     Indication: CONTRACEPTION
     Dosage: UNK
     Dates: start: 20090520, end: 20091001
  3. METFORMIN HCL [Concomitant]
     Indication: POLYCYSTIC OVARIES
     Dosage: UNK UNK, QD
     Dates: start: 20090101, end: 20110101
  4. YASMIN [Suspect]
     Indication: POLYCYSTIC OVARIES
     Dosage: UNK
     Dates: start: 20090906
  5. DROSPIRENONE AND ETHINYL ESTRADIOL [Suspect]
     Indication: POLYCYSTIC OVARIES
  6. NORGESTIMATE AND ETHINYL ESTRADIOL [Concomitant]
  7. YAZ [Suspect]
     Dosage: UNK
     Dates: start: 20040101
  8. OMEPRAZOLE [Concomitant]
     Indication: GASTROOESOPHAGEAL REFLUX DISEASE
     Dosage: UNK
     Dates: start: 20100101, end: 20110101
  9. CALCIUM CARBONATE [Concomitant]
     Indication: GASTROOESOPHAGEAL REFLUX DISEASE

REACTIONS (14)
  - VOMITING [None]
  - BILIARY COLIC [None]
  - ABDOMINAL ADHESIONS [None]
  - CHOLECYSTITIS CHRONIC [None]
  - PANCREATITIS ACUTE [None]
  - GALLBLADDER NECROSIS [None]
  - NAUSEA [None]
  - CHOLELITHIASIS [None]
  - GALLBLADDER DISORDER [None]
  - BACK PAIN [None]
  - ABDOMINAL PAIN [None]
  - GASTROOESOPHAGEAL REFLUX DISEASE [None]
  - PAIN [None]
  - BILIARY DYSKINESIA [None]
